FAERS Safety Report 16264147 (Version 1)
Quarter: 2019Q2

REPORT INFORMATION
  Report Type: Spontaneous
  Country: US (occurrence: US)
  Receive Date: 20190501
  Receipt Date: 20190501
  Transmission Date: 20190711
  Serious: Yes (Hospitalization)
  Sender: FDA-Public Use
  Company Number: None

PATIENT
  Age: 56 Year
  Sex: Female

DRUGS (4)
  1. DOXYCYCLINE HYCLATE TABLET 100MG [Concomitant]
     Dates: start: 20190410, end: 20190420
  2. PREDNISONE TABLET 10MG [Concomitant]
     Dates: start: 20190410, end: 20190425
  3. CEFDINIR CAPSULE 300MG [Concomitant]
     Dates: start: 20190410, end: 20190420
  4. NUCALA [Suspect]
     Active Substance: MEPOLIZUMAB
     Indication: ASTHMA
     Dosage: ?          OTHER FREQUENCY:EVERY 4 WEEKS;?
     Route: 058
     Dates: start: 20181129

REACTIONS (1)
  - Asthma [None]

NARRATIVE: CASE EVENT DATE: 20190422
